FAERS Safety Report 11800304 (Version 1)
Quarter: 2015Q4

REPORT INFORMATION
  Report Type: Spontaneous
  Country: US (occurrence: US)
  Receive Date: 20151203
  Receipt Date: 20151203
  Transmission Date: 20160305
  Serious: No
  Sender: FDA-Public Use
  Company Number: US-UCBSA-2015020564

PATIENT

DRUGS (1)
  1. ISOSORBIDE MONONITRATE EXTENDED-RELEASE TABLET USP [Suspect]
     Active Substance: ISOSORBIDE MONONITRATE
     Indication: PRODUCT USED FOR UNKNOWN INDICATION
     Dosage: UNKNOWN DOSE

REACTIONS (2)
  - Wrong technique in product usage process [None]
  - Wrong technique in product usage process [Unknown]
